FAERS Safety Report 18745748 (Version 3)
Quarter: 2024Q4

REPORT INFORMATION
  Report Type: Report from Study
  Country: US (occurrence: US)
  Receive Date: 20210115
  Receipt Date: 20241012
  Transmission Date: 20250114
  Serious: Yes (Hospitalization, Other)
  Sender: TAKEDA
  Company Number: US-TAKEDA-US202003077

PATIENT
  Sex: Female

DRUGS (2)
  1. HUMAN IMMUNOGLOBULIN G [Suspect]
     Active Substance: HUMAN IMMUNOGLOBULIN G
     Indication: Immunodeficiency common variable
     Dosage: UNK
     Route: 042
  2. HUMAN IMMUNOGLOBULIN G [Suspect]
     Active Substance: HUMAN IMMUNOGLOBULIN G
     Indication: Primary immunodeficiency syndrome

REACTIONS (9)
  - Illness [Unknown]
  - Pneumonia [Unknown]
  - Pneumococcal sepsis [Unknown]
  - Staphylococcal infection [Unknown]
  - Weight decreased [Unknown]
  - Platelet count decreased [Unknown]
  - Infection [Unknown]
  - Insurance issue [Unknown]
  - Inappropriate schedule of product administration [Unknown]
